FAERS Safety Report 9683509 (Version 1)
Quarter: 2013Q4

REPORT INFORMATION
  Report Type: Spontaneous
  Country: US (occurrence: US)
  Receive Date: 20131112
  Receipt Date: 20131112
  Transmission Date: 20140711
  Serious: Yes (Hospitalization)
  Sender: FDA-Public Use
  Company Number: US-INCYTE CORPORATION-2013IN002615

PATIENT
  Age: 56 Year
  Sex: Female
  Weight: 72.56 kg

DRUGS (5)
  1. JAKAFI [Suspect]
     Indication: THROMBOCYTOPENIA
     Dosage: 5 MG, BID, , UNK
     Route: 048
     Dates: start: 20130423
  2. OXYCODONE-ACETAMINOPHEN [Concomitant]
     Dosage: 10-325, UNK
  3. WARFARIN SODIUM [Concomitant]
     Dosage: 10 MG, UNK
  4. HYDROCODONE W/HOMATROPINE [Concomitant]
     Dosage: UNK
  5. CVS IBUPROFEN [Concomitant]
     Dosage: 250 MG CAPLET, UNK

REACTIONS (1)
  - Appendicitis perforated [Unknown]
